FAERS Safety Report 6339453-0 (Version None)
Quarter: 2009Q3

REPORT INFORMATION
  Report Type: 
  Country: None (occurrence: None)
  Receive Date: 20090903
  Receipt Date: 20090828
  Transmission Date: 20100115
  Serious: Yes (Hospitalization)
  Sender: FDA-Public Use
  Company Number: US-ELI_LILLY_AND_COMPANY-US200908006502

PATIENT
  Sex: Male

DRUGS (1)
  1. HUMULIN R [Suspect]
     Dosage: RU500

REACTIONS (4)
  - BLOOD GLUCOSE INCREASED [None]
  - FOOT OPERATION [None]
  - INCORRECT DOSE ADMINISTERED [None]
  - WRONG TECHNIQUE IN DRUG USAGE PROCESS [None]
